FAERS Safety Report 4843942-5 (Version None)
Quarter: 2005Q4

REPORT INFORMATION
  Report Type: 
  Country: None (occurrence: None)
  Receive Date: 20051202
  Receipt Date: 20050801
  Transmission Date: 20060501
  Serious: No
  Sender: FDA-Public Use
  Company Number: US-GLAXOSMITHKLINE-A0569377A

PATIENT
  Age: 18 Month
  Sex: Female

DRUGS (1)
  1. AUGMENTIN [Suspect]
     Indication: EAR INFECTION

REACTIONS (1)
  - TOOTH DISCOLOURATION [None]
